FAERS Safety Report 13901492 (Version 1)
Quarter: 2017Q3

REPORT INFORMATION
  Report Type: Spontaneous
  Country: BR (occurrence: BR)
  Receive Date: 20170824
  Receipt Date: 20170824
  Transmission Date: 20171127
  Serious: Yes (Hospitalization)
  Sender: FDA-Public Use
  Company Number: BR-ASTRAZENECA-2013SE86095

PATIENT
  Age: 939 Month
  Sex: Female
  Weight: 68 kg

DRUGS (16)
  1. FELODIPINE. [Suspect]
     Active Substance: FELODIPINE
     Route: 048
  2. RIVOTRIL [Concomitant]
     Active Substance: CLONAZEPAM
     Indication: ANXIETY
  3. ATACAND COMB [Suspect]
     Active Substance: CANDESARTAN CILEXETIL\FELODIPINE
     Indication: HYPERTENSION
     Dosage: 16+5 MG UNKNOWN
     Route: 048
     Dates: start: 20131120, end: 20131121
  4. ATACAND [Suspect]
     Active Substance: CANDESARTAN CILEXETIL
     Indication: HYPERTENSION
     Route: 048
     Dates: start: 20131122
  5. RIVOTRIL [Concomitant]
     Active Substance: CLONAZEPAM
     Indication: PANIC DISORDER
  6. GLIFAGE XR [Concomitant]
     Active Substance: METFORMIN HYDROCHLORIDE
     Indication: DIABETES MELLITUS
  7. ATACAND [Suspect]
     Active Substance: CANDESARTAN CILEXETIL
     Indication: HYPERTENSION
     Route: 048
     Dates: start: 2012, end: 20131119
  8. ATACAND [Suspect]
     Active Substance: CANDESARTAN CILEXETIL
     Indication: SYNCOPE
     Route: 048
     Dates: start: 2012, end: 20131119
  9. CRESTOR [Suspect]
     Active Substance: ROSUVASTATIN CALCIUM
     Route: 048
  10. ASA [Concomitant]
     Active Substance: ASPIRIN
  11. ARTROLIVE [Concomitant]
     Active Substance: CHONDROITIN SULFATE (BOVINE)\GLUCOSAMINE SULFATE
     Dosage: 500 + 400 MG
  12. GALVUS [Concomitant]
     Active Substance: VILDAGLIPTIN
     Indication: DIABETES MELLITUS
  13. ATACAND [Suspect]
     Active Substance: CANDESARTAN CILEXETIL
     Indication: SYNCOPE
     Route: 048
     Dates: start: 20131122
  14. ATACAND COMB [Suspect]
     Active Substance: CANDESARTAN CILEXETIL\FELODIPINE
     Indication: SYNCOPE
     Dosage: 16+5 MG UNKNOWN
     Route: 048
     Dates: start: 20131120, end: 20131121
  15. OMEPRAZOLE. [Concomitant]
     Active Substance: OMEPRAZOLE
     Dosage: MANUFACTURER MEDLEY
  16. ADDERA D3 [Concomitant]
     Active Substance: CHOLECALCIFEROL

REACTIONS (7)
  - Oral herpes [Not Recovered/Not Resolved]
  - Tachycardia [Recovered/Resolved]
  - Cardiac disorder [Recovering/Resolving]
  - Hyperhidrosis [Recovered/Resolved]
  - Mobility decreased [Recovered/Resolved]
  - Catheter site injury [Unknown]
  - Accidental exposure to product [Recovered/Resolved]

NARRATIVE: CASE EVENT DATE: 201311
